FAERS Safety Report 22087074 (Version 1)
Quarter: 2023Q1

REPORT INFORMATION
  Report Type: Report from Study
  Country: SA (occurrence: SA)
  Receive Date: 20230313
  Receipt Date: 20230313
  Transmission Date: 20230417
  Serious: Yes (Congenital Anomaly)
  Sender: FDA-Public Use
  Company Number: SA-JNJFOC-20230322684

PATIENT
  Age: 4 Month
  Sex: Male

DRUGS (2)
  1. INFLIXIMAB [Suspect]
     Active Substance: INFLIXIMAB
     Indication: Colitis ulcerative
     Route: 064
     Dates: start: 20160301
  2. INFLIXIMAB [Suspect]
     Active Substance: INFLIXIMAB
     Route: 063

REACTIONS (3)
  - Renal fusion anomaly [Unknown]
  - Foetal exposure during pregnancy [Recovered/Resolved]
  - Exposure via breast milk [Unknown]
